FAERS Safety Report 5505656-8 (Version None)
Quarter: 2007Q4

REPORT INFORMATION
  Report Type: 
  Country: None (occurrence: None)
  Receive Date: 20071102
  Receipt Date: 20071022
  Transmission Date: 20080405
  Serious: Yes (Hospitalization, Other)
  Sender: FDA-Public Use
  Company Number: JP-PFIZER INC-2007082725

PATIENT
  Age: 48 Year
  Sex: Female

DRUGS (3)
  1. VFEND [Suspect]
     Indication: MENINGITIS CRYPTOCOCCAL
     Route: 048
     Dates: start: 20070922, end: 20070927
  2. VFEND [Suspect]
     Dosage: DAILY DOSE:400MG
     Route: 048
     Dates: start: 20070928, end: 20071022
  3. IMMUNOSUPPRESSIVE AGENTS [Concomitant]

REACTIONS (5)
  - ALANINE AMINOTRANSFERASE INCREASED [None]
  - BLOOD BILIRUBIN INCREASED [None]
  - EYELID PTOSIS [None]
  - JAUNDICE [None]
  - RASH [None]
